FAERS Safety Report 4341757-8 (Version None)
Quarter: 2004Q2

REPORT INFORMATION
  Report Type: 
  Country: None (occurrence: None)
  Receive Date: 20040415
  Receipt Date: 20040429
  Transmission Date: 20050107
  Serious: Yes (Hospitalization)
  Sender: FDA-Public Use
  Company Number: CA_031106377

PATIENT
  Age: 68 Year
  Sex: Female

DRUGS (9)
  1. GEMCITABINE HYDROCHLORIDE-IV (GEMCITABINE) [Suspect]
     Indication: PANCREATIC CARCINOMA METASTATIC
     Dates: start: 20030416, end: 20030904
  2. RAF KINASE INHIBITOR [Suspect]
     Indication: PANCREATIC CARCINOMA METASTATIC
     Dosage: 800 MG
     Dates: start: 20030417, end: 20030911
  3. LACTULOSE [Concomitant]
  4. COLACE (DOCUSATE SODIUM) [Concomitant]
  5. MS CONTIN [Concomitant]
  6. ATENOLOL [Concomitant]
  7. SYNTHROID [Concomitant]
  8. DOMPERIDONE [Concomitant]
  9. COTAZYM (PANCREATIN) [Concomitant]

REACTIONS (12)
  - ABDOMINAL PAIN [None]
  - BILE DUCT OBSTRUCTION [None]
  - BLOOD CREATININE DECREASED [None]
  - BLOOD SODIUM DECREASED [None]
  - CHOLANGITIS [None]
  - FAECALOMA [None]
  - INFREQUENT BOWEL MOVEMENTS [None]
  - METASTASES TO PERITONEUM [None]
  - NAUSEA [None]
  - PANCREATIC CARCINOMA [None]
  - PYREXIA [None]
  - RED CELL DISTRIBUTION WIDTH ABNORMAL [None]
